FAERS Safety Report 18723994 (Version 2)
Quarter: 2021Q1

REPORT INFORMATION
  Report Type: Report from Study
  Country: CA (occurrence: CA)
  Receive Date: 20210111
  Receipt Date: 20210113
  Transmission Date: 20210419
  Serious: Yes (Other)
  Sender: FDA-Public Use
  Company Number: NVSC2020CA230968

PATIENT
  Age: 36 Year
  Sex: Female

DRUGS (2)
  1. COSENTYX [Suspect]
     Active Substance: SECUKINUMAB
     Indication: ANKYLOSING SPONDYLITIS
     Dosage: 150 MG, QMO
     Route: 058
     Dates: start: 20200709
  2. COSENTYX [Suspect]
     Active Substance: SECUKINUMAB
     Dosage: 150 MG, QMO
     Route: 058
     Dates: start: 20200806, end: 20201106

REACTIONS (9)
  - Migraine [Unknown]
  - Diarrhoea [Unknown]
  - Respiratory tract infection [Unknown]
  - Cystitis [Unknown]
  - Drug ineffective [Unknown]
  - Urinary tract infection [Unknown]
  - Headache [Unknown]
  - Vaginal infection [Unknown]
  - Pain [Unknown]

NARRATIVE: CASE EVENT DATE: 20200818
